FAERS Safety Report 8811037 (Version 1)
Quarter: 2012Q4

REPORT INFORMATION
  Report Type: 
  Country: US (occurrence: US)
  Receive Date: 20120927
  Receipt Date: 20120927
  Transmission Date: 20130627
  Serious: No
  Sender: FDA-Public Use
  Company Number: US-BAYER-2012-087138

PATIENT
  Age: 63 Year
  Sex: Male

DRUGS (4)
  1. LEVITRA [Suspect]
     Indication: ERECTILE DYSFUNCTION
     Dosage: UNK, OW
     Dates: start: 2010
  2. LISINOPRIL [Concomitant]
  3. SIMVASTATIN [Concomitant]
  4. METFORMIN HCL [Concomitant]

REACTIONS (4)
  - Erectile dysfunction [None]
  - Erectile dysfunction [None]
  - Paraesthesia [None]
  - Paraesthesia [None]
